FAERS Safety Report 7704146-1 (Version None)
Quarter: 2011Q3

REPORT INFORMATION
  Report Type: 
  Country: None (occurrence: None)
  Receive Date: 20110801
  Receipt Date: 20110608
  Transmission Date: 20111222
  Serious: Yes (Other)
  Sender: FDA-Public Use
  Company Number: 285022USA

PATIENT
  Sex: Female

DRUGS (1)
  1. LOSEASONIQUE [Suspect]

REACTIONS (2)
  - VISUAL FIELD DEFECT [None]
  - HEADACHE [None]
